FAERS Safety Report 18262337 (Version 1)
Quarter: 2020Q3

REPORT INFORMATION
  Report Type: Spontaneous
  Country: US (occurrence: US)
  Receive Date: 20200913
  Receipt Date: 20200913
  Transmission Date: 20201103
  Serious: Yes (Life-Threatening)
  Sender: FDA-Public Use
  Company Number: None

PATIENT
  Age: 75 Year
  Sex: Male
  Weight: 93.6 kg

DRUGS (10)
  1. ATORVASTATIN [Concomitant]
     Active Substance: ATORVASTATIN
  2. TADALAFIL. [Concomitant]
     Active Substance: TADALAFIL
  3. ASPIRIN 81MG [Concomitant]
     Active Substance: ASPIRIN
  4. LEVOTHYROXINE. [Concomitant]
     Active Substance: LEVOTHYROXINE
  5. MSM [Concomitant]
     Active Substance: DIMETHYL SULFONE
  6. GLUCOSAMINE HCI [Concomitant]
  7. ATORVASTATIN 40 MG TAB LEG [Suspect]
     Active Substance: ATORVASTATIN CALCIUM
     Indication: LOW DENSITY LIPOPROTEIN INCREASED
     Dosage: ?          QUANTITY:1 TABLET(S);?
     Route: 048
  8. AMLODIPINE [Concomitant]
     Active Substance: AMLODIPINE BESYLATE
  9. TESTOSTERONE CYP [Concomitant]
     Active Substance: TESTOSTERONE CYPIONATE
  10. ADULT 50+ MATURE MULTIVITAMS + MINERALS [Concomitant]

REACTIONS (9)
  - Impaired quality of life [None]
  - Insomnia [None]
  - Ageusia [None]
  - Libido decreased [None]
  - Fatigue [None]
  - Neuropathy peripheral [None]
  - Anxiety [None]
  - Anosmia [None]
  - Myalgia [None]

NARRATIVE: CASE EVENT DATE: 20200913
